FAERS Safety Report 24006317 (Version 1)
Quarter: 2024Q2

REPORT INFORMATION
  Report Type: Report from Study
  Country: US (occurrence: US)
  Receive Date: 20240624
  Receipt Date: 20240624
  Transmission Date: 20240716
  Serious: Yes (Hospitalization, Other)
  Sender: FDA-Public Use
  Company Number: US-002147023-NVSC2024US028895

PATIENT
  Age: 0 Year
  Sex: Female
  Weight: 8.56 kg

DRUGS (3)
  1. ZOLGENSMA [Suspect]
     Active Substance: ONASEMNOGENE ABEPARVOVEC-XIOI
     Indication: Spinal muscular atrophy
     Dosage: UNK, ONCE/SINGLE
     Route: 042
     Dates: start: 20240201, end: 20240201
  2. CHOLECALCIFEROL [Concomitant]
     Active Substance: CHOLECALCIFEROL
     Indication: Product used for unknown indication
     Dosage: 2.5 ML, QD DISP: 100 ML, RFL 11
     Route: 048
  3. FAMOTIDINE [Concomitant]
     Active Substance: FAMOTIDINE
     Indication: Product used for unknown indication
     Dosage: 0.45 ML, QD ONE TIME EACH DAY FOR 180 DAYS, DISP: 25 ML, RFL: 5
     Route: 048

REACTIONS (11)
  - Urinary tract infection [Recovered/Resolved]
  - Pyrexia [Recovered/Resolved]
  - Vomiting [Recovered/Resolved]
  - Nausea [Unknown]
  - Hepatic enzyme increased [Recovered/Resolved]
  - Hypertransaminasaemia [Unknown]
  - Blood alkaline phosphatase decreased [Recovered/Resolved]
  - Hypophagia [Unknown]
  - Action tremor [Unknown]
  - Protein total increased [Not Recovered/Not Resolved]
  - Hypotonia [Unknown]

NARRATIVE: CASE EVENT DATE: 20240210
